FAERS Safety Report 5128295-X (Version None)
Quarter: 2006Q4

REPORT INFORMATION
  Report Type: 
  Country: None (occurrence: None)
  Receive Date: 20061017
  Receipt Date: 20061006
  Transmission Date: 20070319
  Serious: Yes (Hospitalization)
  Sender: FDA-Public Use
  Company Number: JP-BRISTOL-MYERS SQUIBB COMPANY-13536297

PATIENT
  Age: 64 Year
  Sex: Male

DRUGS (9)
  1. PARAPLATIN [Suspect]
     Indication: ADULT T-CELL LYMPHOMA/LEUKAEMIA
     Route: 041
     Dates: start: 20040301
  2. VEPESID [Suspect]
     Indication: ADULT T-CELL LYMPHOMA/LEUKAEMIA
     Route: 041
     Dates: start: 20040301
  3. ONCOVIN [Concomitant]
     Dates: start: 20040301
  4. ENDOXAN [Concomitant]
     Dates: start: 20040301
  5. ADRIAMYCIN PFS [Concomitant]
     Dates: start: 20040301
  6. PREDNISOLONE [Concomitant]
     Dates: start: 20040301
  7. FILDESIN [Concomitant]
     Dates: start: 20040301
  8. PERAZOLIN [Concomitant]
     Route: 048
     Dates: end: 20051101
  9. CYMERIN [Concomitant]
     Dates: start: 20040301

REACTIONS (1)
  - ACUTE MYELOID LEUKAEMIA [None]
